FAERS Safety Report 9154031 (Version 4)
Quarter: 2013Q2

REPORT INFORMATION
  Report Type: Spontaneous
  Country: US (occurrence: US)
  Receive Date: 20130311
  Receipt Date: 20130508
  Transmission Date: 20140414
  Serious: Yes (Other)
  Sender: FDA-Public Use
  Company Number: US-PFIZER INC-2013082206

PATIENT
  Age: 55 Year
  Sex: Male
  Weight: 111 kg

DRUGS (8)
  1. CHANTIX [Suspect]
     Indication: SMOKING CESSATION THERAPY
     Dosage: 0.5 MG, 1X/DAY
     Route: 048
     Dates: start: 20130219, end: 20130221
  2. CHANTIX [Suspect]
     Dosage: 0.5 MG, 2X/DAY
     Route: 048
     Dates: start: 20130222, end: 20130225
  3. CHANTIX [Suspect]
     Dosage: 1 MG, 2X/DAY
     Route: 048
     Dates: start: 20130226, end: 20130309
  4. CHANTIX [Suspect]
     Dosage: UNK
  5. NEXIUM [Concomitant]
     Indication: GASTRIC DISORDER
     Dosage: 40 MG, DAILY
  6. HYDROCHLOROTHIAZIDE [Concomitant]
     Dosage: 12.5 MG, DAILY
  7. VENTOLIN [Concomitant]
     Dosage: UNK
  8. ADVAIR [Concomitant]
     Dosage: UNK

REACTIONS (5)
  - Skin exfoliation [Recovered/Resolved]
  - Erythema [Recovered/Resolved]
  - Burning sensation [Recovered/Resolved]
  - Blister [Recovered/Resolved]
  - Rash [Unknown]
